FAERS Safety Report 10505281 (Version 1)
Quarter: 2014Q4

REPORT INFORMATION
  Report Type: Spontaneous
  Country: US (occurrence: US)
  Receive Date: 20141008
  Receipt Date: 20141008
  Transmission Date: 20150528
  Serious: Yes (Death)
  Sender: FDA-Public Use
  Company Number: US-BRISTOL-MYERS SQUIBB COMPANY-21464185

PATIENT
  Age: 39 Year
  Sex: Male
  Weight: 97.46 kg

DRUGS (4)
  1. ERLOTINIB [Suspect]
     Active Substance: ERLOTINIB
  2. SPRYCEL [Suspect]
     Active Substance: DASATINIB
  3. EVEROLIMUS [Suspect]
     Active Substance: EVEROLIMUS
  4. VOTRIENT [Suspect]
     Active Substance: PAZOPANIB HYDROCHLORIDE
     Indication: BRAIN NEOPLASM MALIGNANT
     Dosage: EXP DATE 31OCT2015
     Route: 048
     Dates: start: 20140618

REACTIONS (2)
  - Death [Fatal]
  - Rash [Unknown]
